FAERS Safety Report 8578673-1 (Version None)
Quarter: 2012Q3

REPORT INFORMATION
  Report Type: 
  Country: None (occurrence: None)
  Receive Date: 20120808
  Receipt Date: 20120802
  Transmission Date: 20120928
  Serious: Yes (Death, Other)
  Sender: FDA-Public Use
  Company Number: NL-CELGENEUS-114-20785-11122924

PATIENT
  Sex: Male
  Weight: 74 kg

DRUGS (6)
  1. PREDNISONE [Suspect]
     Indication: MULTIPLE MYELOMA
     Route: 065
     Dates: start: 20091013
  2. MELPHALAN HYDROCHLORIDE [Suspect]
     Indication: MULTIPLE MYELOMA
     Route: 065
     Dates: start: 20091013
  3. THALIDOMIDE [Suspect]
     Indication: MULTIPLE MYELOMA
     Route: 048
     Dates: start: 20091013
  4. THALIDOMIDE [Suspect]
     Dosage: 200 MILLIGRAM
     Route: 048
     Dates: start: 20100525, end: 20100621
  5. PREDNISONE [Suspect]
     Dosage: 170 MILLIGRAM
     Route: 048
     Dates: start: 20100525, end: 20100528
  6. MELPHALAN HYDROCHLORIDE [Suspect]
     Dosage: 15.5 MILLIGRAM
     Route: 048
     Dates: start: 20100525, end: 20100528

REACTIONS (1)
  - RECTOSIGMOID CANCER [None]
